FAERS Safety Report 4592743-4 (Version None)
Quarter: 2005Q1

REPORT INFORMATION
  Report Type: 
  Country: None (occurrence: None)
  Receive Date: 20050228
  Receipt Date: 20050217
  Transmission Date: 20050727
  Serious: Yes (Life-Threatening, Hospitalization, Other)
  Sender: FDA-Public Use
  Company Number: ES-BRISTOL-MYERS SQUIBB COMPANY-12868642

PATIENT
  Age: 22 Year
  Sex: Female

DRUGS (2)
  1. NEOPLATIN [Suspect]
     Route: 042
  2. ETOPOSIDE [Suspect]

REACTIONS (4)
  - ACCIDENTAL OVERDOSE [None]
  - BLOOD CREATININE INCREASED [None]
  - NEUTROPENIA [None]
  - TRANSAMINASES INCREASED [None]
